FAERS Safety Report 5732776-5 (Version None)
Quarter: 2008Q2

REPORT INFORMATION
  Report Type: 
  Country: None (occurrence: None)
  Receive Date: 20080507
  Receipt Date: 20080507
  Transmission Date: 20081010
  Serious: Yes (Death)
  Sender: FDA-Public Use
  Company Number: None

PATIENT
  Age: 72 Year
  Sex: Male
  Weight: 97 kg

DRUGS (7)
  1. INHALED HUMAN INSULIN (INHALED HUMAN INSULIN) [Suspect]
     Indication: TYPE 2 DIABETES MELLITUS
     Dosage: 12 MG (4 IN 1 D), INHALATION
     Route: 055
     Dates: start: 20000501, end: 20010824
  2. GLYBURIDE [Suspect]
     Indication: TYPE 2 DIABETES MELLITUS
     Dosage: 20 MG (2 IN 1 D), ORAL
     Route: 048
     Dates: start: 20000501
  3. AMITRIPTYLINE HCL [Concomitant]
  4. TAMSULOSIN HCL [Concomitant]
  5. CALCIUM W/MAGNESIUM [Concomitant]
  6. ACETYLSALICYLIC ACID SRT [Concomitant]
  7. OTRIVIN [Concomitant]

REACTIONS (2)
  - LUNG SQUAMOUS CELL CARCINOMA STAGE III [None]
  - NEOPLASM PROGRESSION [None]
